FAERS Safety Report 5061036-3 (Version None)
Quarter: 2006Q3

REPORT INFORMATION
  Report Type: 
  Country: None (occurrence: None)
  Receive Date: 20060720
  Receipt Date: 20060707
  Transmission Date: 20061208
  Serious: Yes (Other)
  Sender: FDA-Public Use
  Company Number: 2006085294

PATIENT
  Sex: Male
  Weight: 72.5755 kg

DRUGS (6)
  1. LYRICA [Suspect]
     Indication: SCIATICA
     Dosage: 150 MG (75 MG, 2 IN 1 D)
     Dates: start: 20060602, end: 20060701
  2. NEURONTIN [Suspect]
     Indication: SCIATICA
     Dosage: 300 MG (100 MG, 3 IN 1 D)
     Dates: start: 20040101
  3. LISINOPRIL [Concomitant]
  4. POTASSIUM (POTASSIUM) [Concomitant]
  5. FUROSEMIDE [Concomitant]
  6. CENTRUM (MINERALS NOS, VITAMINS NOS) [Concomitant]

REACTIONS (7)
  - ABNORMAL BEHAVIOUR [None]
  - ABNORMAL DREAMS [None]
  - CEREBROVASCULAR ACCIDENT [None]
  - DYSPNOEA [None]
  - MENTAL DISORDER [None]
  - MUSCLE SPASMS [None]
  - WEIGHT DECREASED [None]
